FAERS Safety Report 8316208-9 (Version None)
Quarter: 2012Q2

REPORT INFORMATION
  Report Type: 
  Country: None (occurrence: None)
  Receive Date: 20120427
  Receipt Date: 20120424
  Transmission Date: 20120825
  Serious: No
  Sender: FDA-Public Use
  Company Number: US-PFIZER INC-2012101780

PATIENT
  Sex: Male

DRUGS (5)
  1. CYMBALTA [Concomitant]
     Indication: DEPRESSION
     Dosage: UNK
  2. LANOXIN [Suspect]
     Indication: TACHYCARDIA
     Dosage: 0.25 MG, 1X/DAY
     Route: 048
     Dates: start: 20100101
  3. TOPROL-XL [Suspect]
     Indication: TACHYCARDIA
     Dosage: 50 MG, 1X/DAY
     Route: 048
     Dates: start: 20100101
  4. TIKOSYN [Suspect]
     Indication: ATRIAL FIBRILLATION
     Dosage: 250 UG, 2X/DAY
     Route: 048
     Dates: start: 20120401
  5. LEVOTHYROXINE [Concomitant]
     Indication: HYPOTHYROIDISM
     Dosage: UNK

REACTIONS (2)
  - ATRIAL FIBRILLATION [None]
  - DIZZINESS [None]
